FAERS Safety Report 6851234-8 (Version None)
Quarter: 2010Q3

REPORT INFORMATION
  Report Type: 
  Country: None (occurrence: None)
  Receive Date: 20100717
  Receipt Date: 20080114
  Transmission Date: 20110219
  Serious: No
  Sender: FDA-Public Use
  Company Number: US-PFIZER INC-2008005016

PATIENT
  Sex: Female
  Weight: 55.454 kg

DRUGS (2)
  1. CHANTIX [Suspect]
     Indication: SMOKING CESSATION THERAPY
     Dates: start: 20070728, end: 20070731
  2. CARDIOVASCULAR SYSTEM DRUGS [Concomitant]
     Indication: HYPERTENSION

REACTIONS (1)
  - HEADACHE [None]
